FAERS Safety Report 17708679 (Version 7)
Quarter: 2021Q2

REPORT INFORMATION
  Report Type: Spontaneous
  Country: US (occurrence: US)
  Receive Date: 20200426
  Receipt Date: 20210629
  Transmission Date: 20210716
  Serious: Yes (Other)
  Sender: FDA-Public Use
  Company Number: US-TEVA-2020-US-1225607

PATIENT
  Age: 71 Year
  Sex: Female

DRUGS (2)
  1. METOPROLOL SUCCINATE TEVA [Suspect]
     Active Substance: METOPROLOL SUCCINATE
     Indication: CARDIAC DISORDER
     Dosage: EXTENDED RELEASE
     Route: 048
  2. METOPROLOL SUCCINATE TEVA [Suspect]
     Active Substance: METOPROLOL SUCCINATE
     Route: 065

REACTIONS (11)
  - Diarrhoea [Unknown]
  - Pulmonary thrombosis [Unknown]
  - Dizziness [Unknown]
  - Lung disorder [Unknown]
  - Product residue present [Unknown]
  - Depression [Unknown]
  - Fatigue [Unknown]
  - Dyspnoea [Unknown]
  - Product substitution issue [Unknown]
  - Weight decreased [Unknown]
  - Cardiovascular disorder [Unknown]

NARRATIVE: CASE EVENT DATE: 20201004
